FAERS Safety Report 16591430 (Version 3)
Quarter: 2020Q3

REPORT INFORMATION
  Report Type: Spontaneous
  Country: US (occurrence: US)
  Receive Date: 20190718
  Receipt Date: 20200716
  Transmission Date: 20201102
  Serious: No
  Sender: FDA-Public Use
  Company Number: US-PFIZER INC-2019296964

PATIENT
  Age: 38 Year
  Sex: Female
  Weight: 74.84 kg

DRUGS (2)
  1. GENOTROPIN MQ [Suspect]
     Active Substance: SOMATROPIN
     Indication: CRANIOCEREBRAL INJURY
     Dosage: 0.4 MG, DAILY
     Dates: start: 20180813
  2. GENOTROPIN MQ [Suspect]
     Active Substance: SOMATROPIN
     Indication: PITUITARY TUMOUR

REACTIONS (10)
  - Feeling abnormal [Unknown]
  - Weight increased [Unknown]
  - Product dose omission issue [Unknown]
  - Malaise [Unknown]
  - Anger [Unknown]
  - Off label use [Unknown]
  - Product use in unapproved indication [Unknown]
  - Disturbance in attention [Unknown]
  - Asthenia [Unknown]
  - Hair growth abnormal [Unknown]

NARRATIVE: CASE EVENT DATE: 20180813
